FAERS Safety Report 6152723-4 (Version None)
Quarter: 2009Q2

REPORT INFORMATION
  Report Type: 
  Country: None (occurrence: None)
  Receive Date: 20090409
  Receipt Date: 20090324
  Transmission Date: 20091009
  Serious: Yes (Other)
  Sender: FDA-Public Use
  Company Number: 2007-US-000205

PATIENT
  Age: 10 Year
  Sex: Male
  Weight: 19.8 kg

DRUGS (3)
  1. INCRELEX [Suspect]
     Indication: BLOOD GROWTH HORMONE ABNORMAL
     Dosage: SEE IMAGE
     Route: 058
     Dates: start: 20070207, end: 20070313
  2. INCRELEX [Suspect]
     Indication: BLOOD GROWTH HORMONE ABNORMAL
     Dosage: SEE IMAGE
     Route: 058
     Dates: start: 20080617, end: 20080622
  3. INCRELEX [Suspect]
     Indication: BLOOD GROWTH HORMONE ABNORMAL
     Dosage: SEE IMAGE
     Route: 058
     Dates: start: 20080623, end: 20080627

REACTIONS (5)
  - HYPERSENSITIVITY [None]
  - INJECTION SITE ERYTHEMA [None]
  - INJECTION SITE HAEMATOMA [None]
  - INJECTION SITE INDURATION [None]
  - INJECTION SITE URTICARIA [None]
